FAERS Safety Report 8511806-1 (Version None)
Quarter: 2012Q3

REPORT INFORMATION
  Report Type: 
  Country: None (occurrence: None)
  Receive Date: 20120716
  Receipt Date: 20120710
  Transmission Date: 20120928
  Serious: Yes (Other)
  Sender: FDA-Public Use
  Company Number: BR-PFIZER INC-2012166091

PATIENT
  Age: 63 Year
  Sex: Female
  Weight: 59 kg

DRUGS (5)
  1. ASPIRIN [Concomitant]
     Indication: ANGIOPLASTY
     Dosage: UNSPECIFIED DOSE 1X/DAY
  2. LIPITOR [Suspect]
     Indication: BLOOD CHOLESTEROL ABNORMAL
     Dosage: 20 MG, 1X/DAY AFTER DINNER
     Route: 048
     Dates: start: 20120701
  3. SYNTHROID [Concomitant]
     Indication: HYPOTHYROIDISM
     Dosage: 75 UG, 1X/DAY
  4. ATENOLOL [Concomitant]
     Indication: HYPERTENSION
     Dosage: UNSPECIFIED DOSE 1X/DAY
  5. CLOPIDOGREL [Concomitant]
     Indication: ANGIOPLASTY
     Dosage: UNSPECIFIED DOSE 1X/DAY

REACTIONS (3)
  - MYALGIA [None]
  - BLOOD PRESSURE INCREASED [None]
  - INSOMNIA [None]
